FAERS Safety Report 6178755-8 (Version None)
Quarter: 2009Q2

REPORT INFORMATION
  Report Type: 
  Country: None (occurrence: None)
  Receive Date: 20090504
  Receipt Date: 20081120
  Transmission Date: 20091009
  Serious: No
  Sender: FDA-Public Use
  Company Number: US-ALEXION-A200800358

PATIENT

DRUGS (1)
  1. SOLIRIS [Suspect]

REACTIONS (2)
  - ORAL HERPES [None]
  - TOOTH EXTRACTION [None]
